FAERS Safety Report 4753155-3 (Version None)
Quarter: 2005Q3

REPORT INFORMATION
  Report Type: 
  Country: None (occurrence: None)
  Receive Date: 20050823
  Receipt Date: 20050809
  Transmission Date: 20060218
  Serious: Yes (Hospitalization, Other)
  Sender: FDA-Public Use
  Company Number: USA0508105004

PATIENT
  Age: 56 Year
  Sex: Female

DRUGS (1)
  1. FORTEO [Suspect]
     Dates: start: 20040701, end: 20050713

REACTIONS (4)
  - BACK DISORDER [None]
  - DRUG EFFECT DECREASED [None]
  - PHARMACEUTICAL PRODUCT COMPLAINT [None]
  - SURGICAL PROCEDURE REPEATED [None]
